FAERS Safety Report 9739307 (Version 1)
Quarter: 2013Q4

REPORT INFORMATION
  Report Type: Spontaneous
  Country: US (occurrence: US)
  Receive Date: 20131209
  Receipt Date: 20131209
  Transmission Date: 20140711
  Serious: Yes (Other)
  Sender: FDA-Public Use
  Company Number: US-SA-2013SA126937

PATIENT
  Age: 64 Year
  Sex: Female

DRUGS (1)
  1. AMBIEN CR [Suspect]
     Indication: INSOMNIA
     Dosage: TAKEN TO: 3-4 YEARS AGO.
     Route: 048

REACTIONS (5)
  - Spinal disorder [Unknown]
  - Angina pectoris [Unknown]
  - Adverse event [Unknown]
  - Neuropathy peripheral [Unknown]
  - Fibromyalgia [Unknown]
